FAERS Safety Report 9994565 (Version 2)
Quarter: 2016Q1

REPORT INFORMATION
  Report Type: Report from Study
  Country: DE (occurrence: DE)
  Receive Date: 20140311
  Receipt Date: 20160201
  Transmission Date: 20160526
  Serious: Yes (Hospitalization)
  Sender: FDA-Public Use
  Company Number: DE-ROCHE-1355692

PATIENT
  Age: 70 Year
  Sex: Female

DRUGS (5)
  1. ETANERCEPT [Concomitant]
     Active Substance: ETANERCEPT
     Route: 065
     Dates: start: 201009, end: 201012
  2. GOLIMUMAB [Concomitant]
     Active Substance: GOLIMUMAB
     Route: 065
     Dates: start: 201012, end: 201101
  3. ENBREL [Concomitant]
     Active Substance: ETANERCEPT
     Route: 065
  4. SIMPONI [Concomitant]
     Active Substance: GOLIMUMAB
  5. RITUXIMAB [Suspect]
     Active Substance: RITUXIMAB
     Indication: RHEUMATOID ARTHRITIS
     Route: 042
     Dates: start: 20110408, end: 20120613

REACTIONS (9)
  - Cardiac resynchronisation therapy [Unknown]
  - Tricuspid valve incompetence [Unknown]
  - Mitral valve incompetence [Unknown]
  - Pleural effusion [Unknown]
  - Ovarian mass [Unknown]
  - Cardiac pacemaker removal [Unknown]
  - Pulmonary hypertension [Unknown]
  - Device alarm issue [Unknown]
  - Cardiac failure [Unknown]

NARRATIVE: CASE EVENT DATE: 20130513
